FAERS Safety Report 25174759 (Version 2)
Quarter: 2025Q2

REPORT INFORMATION
  Report Type: Spontaneous
  Country: US (occurrence: None)
  Receive Date: 20250408
  Receipt Date: 20250423
  Transmission Date: 20250717
  Serious: No
  Sender: INCYTE
  Company Number: US-EVENT-001870

PATIENT
  Age: 70 Year
  Weight: 90.72 kg

DRUGS (4)
  1. OPZELURA [Suspect]
     Active Substance: RUXOLITINIB PHOSPHATE
     Indication: Vitiligo
     Dosage: UNK, BID
     Route: 065
  2. OPZELURA [Suspect]
     Active Substance: RUXOLITINIB PHOSPHATE
     Indication: Dermatitis atopic
     Dosage: UNK, BID
     Route: 065
  3. OPZELURA [Suspect]
     Active Substance: RUXOLITINIB PHOSPHATE
     Dosage: UNK, BID
     Route: 065
  4. OPZELURA [Suspect]
     Active Substance: RUXOLITINIB PHOSPHATE
     Dosage: 1.5 PERCENT,APPLY A THIN LAYER TO AFFECTED AREA(S) TWICE DAILY AS DIRECTED
     Route: 065

REACTIONS (6)
  - Pruritus [Unknown]
  - Rash [Not Recovered/Not Resolved]
  - Skin haemorrhage [Unknown]
  - Ear infection [Unknown]
  - Off label use [Unknown]
  - Product availability issue [Unknown]
